FAERS Safety Report 5835923-X (Version None)
Quarter: 2008Q3

REPORT INFORMATION
  Report Type: 
  Country: None (occurrence: None)
  Receive Date: 20080806
  Receipt Date: 20080728
  Transmission Date: 20090109
  Serious: Yes (Hospitalization)
  Sender: FDA-Public Use
  Company Number: FR-PFIZER INC-2006122476

PATIENT
  Sex: Female
  Weight: 54 kg

DRUGS (2)
  1. SU-011,248 [Suspect]
     Indication: NEOPLASM
     Route: 048
     Dates: start: 20060927, end: 20061001
  2. IRINOTECAN HCL [Suspect]
     Indication: NEOPLASM
     Route: 042
     Dates: start: 20060926, end: 20060926

REACTIONS (4)
  - ANAEMIA [None]
  - NEUTROPENIA [None]
  - THROMBOCYTOPENIA [None]
  - TUMOUR HAEMORRHAGE [None]
